FAERS Safety Report 6828642-4 (Version None)
Quarter: 2010Q3

REPORT INFORMATION
  Report Type: 
  Country: None (occurrence: None)
  Receive Date: 20100709
  Receipt Date: 20070215
  Transmission Date: 20110219
  Serious: No
  Sender: FDA-Public Use
  Company Number: US-PFIZER INC-2007013044

PATIENT
  Sex: Female
  Weight: 81.19 kg

DRUGS (6)
  1. CHANTIX [Suspect]
     Indication: SMOKING CESSATION THERAPY
     Dates: start: 20061201
  2. TESTRED [Concomitant]
  3. LIPITOR [Concomitant]
  4. HYDROCORTISONE [Concomitant]
  5. AROMASIN [Concomitant]
  6. NICOTINE [Concomitant]

REACTIONS (4)
  - ABNORMAL DREAMS [None]
  - FAECES DISCOLOURED [None]
  - NAUSEA [None]
  - WEIGHT INCREASED [None]
